FAERS Safety Report 9462994 (Version 1)
Quarter: 2013Q3

REPORT INFORMATION
  Report Type: Spontaneous
  Country: JP (occurrence: JP)
  Receive Date: 20130816
  Receipt Date: 20130816
  Transmission Date: 20140515
  Serious: Yes (Other)
  Sender: FDA-Public Use
  Company Number: JP-009507513-1308JPN006143

PATIENT
  Age: 45 Year
  Sex: Female

DRUGS (2)
  1. PEGINTRON [Suspect]
     Dosage: DAILY DOSE UNKNOWN
     Route: 065
     Dates: start: 201006, end: 201007
  2. REBETOL [Suspect]
     Dosage: DAILY DOSE UNKNOWN
     Route: 065
     Dates: start: 201006, end: 201007

REACTIONS (1)
  - Depression [Unknown]
